FAERS Safety Report 4818855-5 (Version None)
Quarter: 2005Q4

REPORT INFORMATION
  Report Type: 
  Country: None (occurrence: None)
  Receive Date: 20051101
  Receipt Date: 20051021
  Transmission Date: 20060501
  Serious: Yes (Hospitalization, Disabling, Other)
  Sender: FDA-Public Use
  Company Number: KII-2005-0019187

PATIENT
  Sex: Female

DRUGS (2)
  1. OXYCODONE HCL [Suspect]
     Dosage: ORAL
     Route: 048
  2. BENZODIAZEPINE DERIVATIVES [Suspect]
     Dosage: ORAL
     Route: 048

REACTIONS (8)
  - CEREBRAL INFARCTION [None]
  - COMA [None]
  - DRUG EFFECT DECREASED [None]
  - HEMIPLEGIA [None]
  - MULTIPLE DRUG OVERDOSE [None]
  - MYOCARDIAL INFARCTION [None]
  - RESPIRATORY RATE INCREASED [None]
  - RESTLESSNESS [None]
